FAERS Safety Report 21561731 (Version 8)
Quarter: 2024Q4

REPORT INFORMATION
  Report Type: Spontaneous
  Country: US (occurrence: US)
  Receive Date: 20221107
  Receipt Date: 20241220
  Transmission Date: 20250114
  Serious: Yes (Hospitalization)
  Sender: PFIZER
  Company Number: US-PFIZER INC-PV202200096768

PATIENT
  Age: 81 Year
  Sex: Female
  Weight: 91.066 kg

DRUGS (2)
  1. VYNDAMAX [Suspect]
     Active Substance: TAFAMIDIS
     Indication: Amyloidosis
     Dosage: 61MG, TOOK ONCE PER DAY UNTIL SHE WENT INTO THE HOSPITAL
     Route: 048
     Dates: start: 202211, end: 20221121
  2. VYNDAMAX [Suspect]
     Active Substance: TAFAMIDIS
     Indication: Cardiac failure congestive
     Dosage: TAKE 1 CAPSULE (61 MG TOTAL) BY MOUTH DAILY
     Route: 048

REACTIONS (6)
  - Dizziness [Recovering/Resolving]
  - Neuritis [Recovering/Resolving]
  - Vertigo [Recovering/Resolving]
  - Pain [Unknown]
  - Constipation [Not Recovered/Not Resolved]
  - Dysstasia [Unknown]

NARRATIVE: CASE EVENT DATE: 20221101
